FAERS Safety Report 14160421 (Version 1)
Quarter: 2017Q4

REPORT INFORMATION
  Report Type: Spontaneous
  Country: GB (occurrence: GB)
  Receive Date: 20171104
  Receipt Date: 20171104
  Transmission Date: 20180321
  Serious: Yes (Hospitalization)
  Sender: FDA-Public Use
  Company Number: GB-ACCORD-060514

PATIENT
  Age: 71 Year
  Sex: Male

DRUGS (9)
  1. CISPLATIN. [Suspect]
     Active Substance: CISPLATIN
     Indication: OESOPHAGEAL CANCER METASTATIC
     Route: 042
     Dates: start: 20171003, end: 20171010
  2. FLUOROURACIL. [Suspect]
     Active Substance: FLUOROURACIL
     Indication: OESOPHAGEAL CANCER METASTATIC
     Route: 042
     Dates: start: 20171003, end: 20171010
  3. BISOPROLOL [Concomitant]
     Active Substance: BISOPROLOL
  4. ATORVASTATIN [Concomitant]
     Active Substance: ATORVASTATIN
  5. ONDANSETRON [Concomitant]
     Active Substance: ONDANSETRON
  6. METOCLOPRAMIDE. [Concomitant]
     Active Substance: METOCLOPRAMIDE
  7. FUROSEMIDE. [Concomitant]
     Active Substance: FUROSEMIDE
  8. LACTULOSE. [Concomitant]
     Active Substance: LACTULOSE
  9. RAMIPRIL. [Concomitant]
     Active Substance: RAMIPRIL

REACTIONS (3)
  - Oral candidiasis [Unknown]
  - Stomatitis [Recovering/Resolving]
  - Off label use [Unknown]

NARRATIVE: CASE EVENT DATE: 20171012
